FAERS Safety Report 21948779 (Version 1)
Quarter: 2023Q1

REPORT INFORMATION
  Report Type: Spontaneous
  Country: GB (occurrence: GB)
  Receive Date: 20230203
  Receipt Date: 20230203
  Transmission Date: 20230418
  Serious: Yes (Other)
  Sender: FDA-Public Use
  Company Number: GB-MHRA-MED-202301240035598320-TMKWG

PATIENT
  Age: 33 Year
  Sex: Male
  Weight: 114 kg

DRUGS (1)
  1. TAMSULOSIN [Suspect]
     Active Substance: TAMSULOSIN
     Indication: Prostatitis
     Dosage: UNK
     Route: 065

REACTIONS (3)
  - Gynaecomastia [Recovered/Resolved]
  - Breast tenderness [Recovered/Resolved]
  - Breast mass [Recovered/Resolved]
